FAERS Safety Report 18710895 (Version 2)
Quarter: 2021Q2

REPORT INFORMATION
  Report Type: Spontaneous
  Country: US (occurrence: US)
  Receive Date: 20210107
  Receipt Date: 20210405
  Transmission Date: 20210717
  Serious: Yes (Other)
  Sender: FDA-Public Use
  Company Number: NVSC2021US001510

PATIENT
  Sex: Female

DRUGS (1)
  1. TRILEPTAL [Suspect]
     Active Substance: OXCARBAZEPINE
     Indication: PRODUCT USED FOR UNKNOWN INDICATION
     Dosage: 600 MG, BID
     Route: 065

REACTIONS (12)
  - Abdominal discomfort [Unknown]
  - Pruritus [Unknown]
  - Weight increased [Unknown]
  - Schizophrenia [Unknown]
  - Liver disorder [Unknown]
  - Temperature intolerance [Unknown]
  - Blood sodium decreased [Unknown]
  - Burning sensation [Unknown]
  - Onychomycosis [Unknown]
  - Contusion [Unknown]
  - Rash [Unknown]
  - Headache [Unknown]
